FAERS Safety Report 10434063 (Version 1)
Quarter: 2014Q3

REPORT INFORMATION
  Report Type: Spontaneous
  Country: US (occurrence: US)
  Receive Date: 20140905
  Receipt Date: 20140905
  Transmission Date: 20150326
  Serious: Yes (Death)
  Sender: FDA-Public Use
  Company Number: US-JNJFOC-20140901075

PATIENT
  Sex: Male

DRUGS (2)
  1. XTANDI [Concomitant]
     Active Substance: ENZALUTAMIDE
     Route: 065
  2. ZYTIGA [Suspect]
     Active Substance: ABIRATERONE ACETATE
     Indication: PROSTATE CANCER METASTATIC
     Route: 048

REACTIONS (1)
  - Myocardial infarction [Fatal]
